FAERS Safety Report 6425012-8 (Version None)
Quarter: 2009Q4

REPORT INFORMATION
  Report Type: 
  Country: None (occurrence: None)
  Receive Date: 20091103
  Receipt Date: 20091028
  Transmission Date: 20100525
  Serious: Yes (Other)
  Sender: FDA-Public Use
  Company Number: GXKR2009GB02428

PATIENT
  Age: 72 Year
  Sex: Male

DRUGS (3)
  1. METRONIDAZOLE (NGX) [Suspect]
     Indication: HELICOBACTER INFECTION
     Dosage: 400 MG
     Route: 065
     Dates: start: 20040710
  2. METRONIDAZOLE (NGX) [Suspect]
     Indication: TOOTH INFECTION
     Dosage: UNK
     Route: 065
     Dates: start: 20051026, end: 20051102
  3. AMOXICILLIN [Concomitant]
     Indication: HELICOBACTER INFECTION
     Dosage: 500 MG, TID
     Route: 048
     Dates: start: 20051026, end: 20051102

REACTIONS (1)
  - APLASTIC ANAEMIA [None]
